FAERS Safety Report 6713556-0 (Version None)
Quarter: 2010Q2

REPORT INFORMATION
  Report Type: 
  Country: None (occurrence: None)
  Receive Date: 20100506
  Receipt Date: 20100427
  Transmission Date: 20101027
  Serious: Yes (Other)
  Sender: FDA-Public Use
  Company Number: US-SANOFI-AVENTIS-2010SA025026

PATIENT
  Age: 61 Year
  Sex: Male

DRUGS (4)
  1. LANTUS [Suspect]
     Dosage: DOSE:12 UNIT(S)
     Route: 058
     Dates: start: 20100101
  2. SOLOSTAR [Suspect]
     Dates: start: 20100101
  3. COREG [Concomitant]
  4. NOVOLOG [Concomitant]

REACTIONS (6)
  - BLOOD GLUCOSE INCREASED [None]
  - BLOOD POTASSIUM DECREASED [None]
  - MOBILITY DECREASED [None]
  - MUSCLE SPASMS [None]
  - NEOPLASM SKIN [None]
  - TRANSIENT ISCHAEMIC ATTACK [None]
